FAERS Safety Report 23699873 (Version 1)
Quarter: 2024Q2

REPORT INFORMATION
  Report Type: Spontaneous
  Country: HR (occurrence: HR)
  Receive Date: 20240403
  Receipt Date: 20240403
  Transmission Date: 20240716
  Serious: Yes (Hospitalization)
  Sender: FDA-Public Use
  Company Number: None

PATIENT
  Age: 67 Year
  Sex: Female
  Weight: 61 kg

DRUGS (13)
  1. VALCYTE [Concomitant]
     Active Substance: VALGANCICLOVIR HYDROCHLORIDE
     Indication: Cytomegalovirus viraemia
     Dosage: 450 MG, QOD
     Route: 048
     Dates: start: 202203
  2. CERTICAN [Concomitant]
     Active Substance: EVEROLIMUS
     Indication: Heart transplant
     Dosage: UNK THE DOSE DEPENDS ON THE CONCENTRATION OF THE MEDICINAL PRODUCT
     Route: 048
     Dates: start: 202304
  3. PREDNISONE [Concomitant]
     Active Substance: PREDNISONE
     Indication: Heart transplant
     Dosage: 30 MG, QD (THE STRENGHT OF THE MEDICINAL PRODUCT 30 MG DOSAGE 1XDAILY )
     Route: 048
     Dates: start: 202304
  4. MOXONIDINE [Concomitant]
     Active Substance: MOXONIDINE
     Indication: Hypertension
     Dosage: THE STRENGHT OF THE MEDICINAL PRODUCT 0.2 MG DOSAGE 2X0.2 MG
     Route: 048
  5. TULIP [FLURBIPROFEN] [Concomitant]
     Indication: Heart transplant
     Dosage: 20 MG, QD
     Route: 048
     Dates: start: 202304
  6. PROGRAF [Concomitant]
     Active Substance: TACROLIMUS
     Indication: Heart transplant
     Dosage: THE STRENGHT OF THE MEDICINAL PRODUCT, THE DOSE DEPENDS ON THE CONCENTRATION OF THE MEDICINAL PRODUC
     Route: 048
     Dates: start: 202204
  7. TRESIBA [Concomitant]
     Active Substance: INSULIN DEGLUDEC
     Indication: Type 2 diabetes mellitus
     Dosage: 100 IU/ML, QD (THE STRENGHT OF THE MEDICINAL PRODUCT 100 IU/ML. DOSAGE 26 IU WITHIN 10 H)
     Route: 058
     Dates: start: 2024
  8. TRESIBA [Concomitant]
     Active Substance: INSULIN DEGLUDEC
     Indication: Steroid diabetes
  9. RYBELSUS [Suspect]
     Active Substance: SEMAGLUTIDE
     Indication: Steroid diabetes
     Dosage: 7 MG, QD
     Route: 048
     Dates: start: 202311, end: 20240224
  10. RYBELSUS [Suspect]
     Active Substance: SEMAGLUTIDE
     Indication: Type 2 diabetes mellitus
  11. PANTOPRAZOLE SODIUM [Concomitant]
     Active Substance: PANTOPRAZOLE SODIUM
     Indication: Prophylaxis against gastrointestinal ulcer
     Dosage: 40 MG, QD
     Route: 048
     Dates: start: 202204
  12. FIASP [Concomitant]
     Active Substance: INSULIN ASPART
     Indication: Steroid diabetes
     Dosage: THE STRENGHT OF THE MEDICINAL PRODUCT 100 IU/ML DOSAGE
     Route: 058
     Dates: start: 2024
  13. FIASP [Concomitant]
     Active Substance: INSULIN ASPART
     Indication: Type 2 diabetes mellitus

REACTIONS (1)
  - Visual impairment [Recovering/Resolving]

NARRATIVE: CASE EVENT DATE: 20240215
